FAERS Safety Report 6614938-8 (Version None)
Quarter: 2010Q1

REPORT INFORMATION
  Report Type: 
  Country: None (occurrence: None)
  Receive Date: 20100305
  Receipt Date: 20100115
  Transmission Date: 20100710
  Serious: Yes (Hospitalization, Other)
  Sender: FDA-Public Use
  Company Number: US-JNJFOC-20091206210

PATIENT
  Sex: Female
  Weight: 54.89 kg

DRUGS (25)
  1. LEVAQUIN [Suspect]
     Indication: URINARY TRACT INFECTION
     Route: 042
     Dates: start: 20091121, end: 20091121
  2. CIPRO [Concomitant]
     Indication: URINARY TRACT INFECTION
     Route: 065
     Dates: start: 20091101, end: 20091101
  3. HEPARIN [Concomitant]
     Indication: CARDIAC DISORDER
     Route: 065
     Dates: start: 20091123, end: 20091123
  4. BACTRIM [Concomitant]
     Indication: URINARY TRACT INFECTION
     Route: 065
     Dates: start: 20091101, end: 20091217
  5. GLYCERYL TRINITRATE [Concomitant]
     Indication: CARDIAC DISORDER
     Route: 065
     Dates: start: 20080101
  6. PLAVIX [Concomitant]
     Indication: CARDIAC DISORDER
     Route: 065
  7. PRAVASTATIN [Concomitant]
     Indication: BLOOD CHOLESTEROL
     Route: 065
  8. DYAZIDE [Concomitant]
     Indication: FATTY ACID DEFICIENCY
     Route: 065
  9. ESTRADIOL [Concomitant]
     Indication: BLOOD OESTROGEN
     Route: 065
  10. NEXIUM [Concomitant]
     Indication: GASTROOESOPHAGEAL REFLUX DISEASE
     Route: 065
     Dates: start: 20040101
  11. TOPAMAX [Concomitant]
     Indication: MIGRAINE
     Route: 065
     Dates: start: 20040101
  12. PROZAC [Concomitant]
     Indication: DEPRESSION
     Route: 065
  13. OTHER THERAPEUTIC PRODUCTS [Concomitant]
     Indication: SLEEP DISORDER
     Route: 065
  14. CHLORINE [Concomitant]
     Indication: MEDICAL DIET
     Route: 065
  15. POTASSIUM [Concomitant]
     Indication: MEDICAL DIET
     Route: 065
  16. CALCIUM [Concomitant]
     Indication: MEDICAL DIET
     Route: 065
  17. ATARAX [Concomitant]
     Indication: PRURITUS
     Route: 065
  18. ALPRAZOLAM [Concomitant]
     Indication: PRURITUS
     Route: 065
  19. DARVOCET [Concomitant]
     Indication: BACK PAIN
     Route: 065
  20. VITAMIN B-12 [Concomitant]
     Indication: ENERGY INCREASED
     Route: 065
  21. PHENERGAN HCL [Concomitant]
     Indication: MIGRAINE
     Route: 065
  22. SPIRIVA [Concomitant]
     Indication: PULMONARY CONGESTION
     Route: 065
  23. OTHER THERAPEUTIC PRODUCT [Concomitant]
     Indication: PULMONARY CONGESTION
     Route: 065
  24. PHENAZOPYRIDINE HCL TAB [Concomitant]
     Indication: BLADDER DISORDER
     Route: 065
  25. MELATONIN [Concomitant]
     Indication: SLEEP DISORDER
     Route: 065

REACTIONS (10)
  - ABASIA [None]
  - ARTHRALGIA [None]
  - BACK PAIN [None]
  - CHEST PAIN [None]
  - DYSPNOEA [None]
  - HALLUCINATION [None]
  - HYPOAESTHESIA [None]
  - LOSS OF CONSCIOUSNESS [None]
  - PRURITUS [None]
  - VISUAL IMPAIRMENT [None]
